FAERS Safety Report 17191739 (Version 2)
Quarter: 2020Q4

REPORT INFORMATION
  Report Type: Spontaneous
  Country: US (occurrence: US)
  Receive Date: 20191223
  Receipt Date: 20201214
  Transmission Date: 20210113
  Serious: Yes (Death, Other)
  Sender: FDA-Public Use
  Company Number: US-PFIZER INC-2019549249

PATIENT
  Sex: Female

DRUGS (1)
  1. VECURONIUM BROMIDE. [Suspect]
     Active Substance: VECURONIUM BROMIDE
     Dosage: UNK

REACTIONS (3)
  - Wrong product administered [Fatal]
  - Cardiac arrest [Fatal]
  - Product dispensing error [Fatal]
